FAERS Safety Report 23800939 (Version 1)
Quarter: 2024Q2

REPORT INFORMATION
  Report Type: Spontaneous
  Country: US (occurrence: US)
  Receive Date: 20240430
  Receipt Date: 20240430
  Transmission Date: 20240716
  Serious: No
  Sender: FDA-Public Use
  Company Number: US-MYLANLABS-2024M1037008

PATIENT
  Sex: Male

DRUGS (1)
  1. NEURONTIN [Suspect]
     Active Substance: GABAPENTIN
     Indication: Product used for unknown indication
     Dosage: UNK, (ONE CAPSULE EVERY MORNING, 2 CAPSULES BY MOUTH NIGHTLY AND 1 ADDITIONAL CAP AS NEEDED)
     Route: 048
     Dates: start: 20231113

REACTIONS (1)
  - Off label use [Unknown]
